FAERS Safety Report 21163398 (Version 2)
Quarter: 2022Q3

REPORT INFORMATION
  Report Type: Report from Study
  Country: FR (occurrence: FR)
  Receive Date: 20220802
  Receipt Date: 20220927
  Transmission Date: 20221027
  Serious: Yes (Death, Other)
  Sender: FDA-Public Use
  Company Number: FR-PFIZER INC-PV202200034772

PATIENT
  Sex: Female

DRUGS (2)
  1. PACLITAXEL [Suspect]
     Active Substance: PACLITAXEL
     Indication: Ovarian cancer recurrent
     Dosage: 65 MG/M2, CYCLIC (WEEKLY DAYS 1,8, 15)
     Route: 042
  2. PAZOPANIB [Suspect]
     Active Substance: PAZOPANIB
     Indication: Ovarian cancer recurrent
     Dosage: 600 MG, DAILY, WITH THE OPTION TO INCREASE TO 800 MG/DAY IF WELL TOLERATED
     Route: 048

REACTIONS (1)
  - Pulmonary embolism [Fatal]
